FAERS Safety Report 7956924-1 (Version None)
Quarter: 2011Q4

REPORT INFORMATION
  Report Type: 
  Country: None (occurrence: None)
  Receive Date: 20111130
  Receipt Date: 20111115
  Transmission Date: 20120403
  Serious: Yes (Hospitalization)
  Sender: FDA-Public Use
  Company Number: TPA2011A07875

PATIENT
  Age: 58 Year
  Sex: Male

DRUGS (6)
  1. PURSENNID (SENNOSIDE A+B CALCIUM) [Concomitant]
  2. FEBURIC (FEBUXOSTAT) [Suspect]
     Indication: HYPERURICAEMIA
     Dosage: 10 MG (10 MG, 1 IN 1 D) PER ORAL
     Route: 048
     Dates: start: 20111013, end: 20111111
  3. ACETAMINOPHEN [Concomitant]
  4. LENADEX (DEXAMETHASONE) [Concomitant]
  5. VELCADE [Concomitant]
  6. LANSOPRAZOLE [Concomitant]

REACTIONS (1)
  - RASH [None]
